FAERS Safety Report 6961544-1 (Version None)
Quarter: 2010Q3

REPORT INFORMATION
  Report Type: 
  Country: None (occurrence: None)
  Receive Date: 20100901
  Receipt Date: 20100831
  Transmission Date: 20110219
  Serious: Yes (Other)
  Sender: FDA-Public Use
  Company Number: US-ROXANE LABORATORIES, INC.-2010-RO-01163RO

PATIENT
  Age: 6 Year
  Sex: Male

DRUGS (2)
  1. TOPIRAMATE [Suspect]
     Indication: EPILEPSY
  2. ZONISAMIDE [Suspect]
     Indication: EPILEPSY

REACTIONS (4)
  - CALCULUS URINARY [None]
  - HYPERCALCIURIA [None]
  - METABOLIC ACIDOSIS [None]
  - NEPHROLITHIASIS [None]
